FAERS Safety Report 15782914 (Version 1)
Quarter: 2019Q1

REPORT INFORMATION
  Report Type: Spontaneous
  Country: US (occurrence: US)
  Receive Date: 20190102
  Receipt Date: 20190102
  Transmission Date: 20190417
  Serious: No
  Sender: FDA-Public Use
  Company Number: US-PERRIGO-18US007973

PATIENT
  Sex: Female

DRUGS (1)
  1. TIOCONAZOLE. [Suspect]
     Active Substance: TIOCONAZOLE
     Indication: VULVOVAGINAL DISCOMFORT
     Dosage: 300 MG, SINGLE
     Route: 067
     Dates: start: 20180721, end: 20180721

REACTIONS (2)
  - Vulvovaginal pruritus [Unknown]
  - Drug effect incomplete [Unknown]

NARRATIVE: CASE EVENT DATE: 201807
